FAERS Safety Report 7536919-2 (Version None)
Quarter: 2011Q2

REPORT INFORMATION
  Report Type: 
  Country: None (occurrence: None)
  Receive Date: 20110609
  Receipt Date: 20110513
  Transmission Date: 20111010
  Serious: Yes (Hospitalization)
  Sender: FDA-Public Use
  Company Number: US-BAYER-2011-007928

PATIENT
  Sex: Female
  Weight: 58.957 kg

DRUGS (4)
  1. DROSPIRENONE AND ETHINYL ESTRADIOL [Suspect]
     Indication: ACNE
  2. YAZ [Suspect]
     Indication: ACNE
  3. YASMIN [Suspect]
     Indication: ACNE
  4. ADIPEX [Concomitant]

REACTIONS (4)
  - PAIN [None]
  - THROMBOSIS [None]
  - NEPHROLITHIASIS [None]
  - INJURY [None]
